FAERS Safety Report 7288644 (Version 2)
Quarter: 2014Q3

REPORT INFORMATION
  Report Type: Spontaneous
  Country: US (occurrence: None)
  Receive Date: 20100202
  Receipt Date: 20140926
  Transmission Date: 20150326
  Serious: Yes (Death, Hospitalization, Other)
  Sender: FDA-Public Use
  Company Number: 2010S1000342

PATIENT
  Age: 80 Year
  Sex: Male

DRUGS (8)
  1. COLCHICINE. [Concomitant]
     Active Substance: COLCHICINE
  2. CLONIDINE. [Concomitant]
     Active Substance: CLONIDINE
  3. DIAZIDE (GLICLAZIDE) [Concomitant]
  4. PHOSPHO-SODA [Suspect]
     Active Substance: SODIUM PHOSPHATE, DIBASIC\SODIUM PHOSPHATE, MONOBASIC
     Indication: COLONOSCOPY
     Dosage: ; PO
     Route: 048
     Dates: start: 20030812, end: 20030812
  5. PRINIVIL (LISINOPRIL DIHYDRATE) [Concomitant]
  6. ASPIRIN (ACETYLSALICYLIC ACID) [Concomitant]
     Active Substance: ASPIRIN
  7. COUMADIN [Concomitant]
     Active Substance: WARFARIN SODIUM
  8. ALLOPURINOL. [Concomitant]
     Active Substance: ALLOPURINOL

REACTIONS (14)
  - Haemodialysis [None]
  - Coronary artery disease [None]
  - Dialysis [None]
  - Renal failure acute [None]
  - Renal failure chronic [None]
  - Gouty arthritis [None]
  - Device connection issue [None]
  - Nephrogenic anaemia [None]
  - Hypertension [None]
  - Fall [None]
  - Hyperkalaemia [None]
  - Rib fracture [None]
  - Deep vein thrombosis [None]
  - Azotaemia [None]

NARRATIVE: CASE EVENT DATE: 20030904
